FAERS Safety Report 14186316 (Version 8)
Quarter: 2020Q4

REPORT INFORMATION
  Report Type: Other
  Country: CA (occurrence: CA)
  Receive Date: 20171114
  Receipt Date: 20201218
  Transmission Date: 20210113
  Serious: Yes (Hospitalization, Other)
  Sender: FDA-Public Use
  Company Number: CA-ROCHE-2020855

PATIENT
  Age: 81 Year
  Sex: Female
  Weight: 66.7 kg

DRUGS (39)
  1. NITRO [Concomitant]
     Active Substance: NITROGLYCERIN
  2. LYRICA [Concomitant]
     Active Substance: PREGABALIN
  3. MYCOPHENOLATE MOFETIL SANDOZ [Concomitant]
     Active Substance: MYCOPHENOLATE MOFETIL
     Dates: start: 20181026
  4. PREGABALIN. [Concomitant]
     Active Substance: PREGABALIN
     Dates: start: 20181026
  5. ACTEMRA [Suspect]
     Active Substance: TOCILIZUMAB
     Route: 042
     Dates: start: 2015, end: 20200130
  6. CELEBREX [Concomitant]
     Active Substance: CELECOXIB
  7. LINCTUS CODEINE [Concomitant]
     Active Substance: CODEINE PHOSPHATE
     Dosage: 10MG/5ML
     Dates: start: 20181108
  8. XARELTO [Concomitant]
     Active Substance: RIVAROXABAN
     Dates: start: 20181101
  9. PREVNAR [Concomitant]
     Active Substance: PNEUMOCOCCAL 7-VALENT CONJUGATE VACCINE (DIPHTHERIA CRM197 PROTEIN)
     Dosage: 0.5 ML
     Dates: start: 20181030
  10. QUININE [Concomitant]
     Active Substance: QUININE
     Dates: start: 20181026
  11. VIT D [COLECALCIFEROL] [Concomitant]
  12. ACTEMRA [Suspect]
     Active Substance: TOCILIZUMAB
     Route: 042
     Dates: start: 20110816, end: 20150727
  13. ACTEMRA [Suspect]
     Active Substance: TOCILIZUMAB
     Route: 042
     Dates: start: 20150824, end: 2015
  14. ROSUVASTATIN. [Concomitant]
     Active Substance: ROSUVASTATIN
  15. PREDNISONE. [Concomitant]
     Active Substance: PREDNISONE
     Route: 048
     Dates: start: 20181026
  16. VENTOLIN [Concomitant]
     Active Substance: ALBUTEROL SULFATE
  17. PREGABALIN. [Concomitant]
     Active Substance: PREGABALIN
     Dates: start: 20180726
  18. CARBOCAL D [Concomitant]
     Active Substance: CALCIUM\VITAMIN D
     Dates: start: 20181026
  19. OXEZE [Concomitant]
     Active Substance: FORMOTEROL FUMARATE
     Dates: start: 20180926
  20. PLAQUENIL [Concomitant]
     Active Substance: HYDROXYCHLOROQUINE SULFATE
  21. PRIMROSE [Concomitant]
  22. DEXILANT [Concomitant]
     Active Substance: DEXLANSOPRAZOLE
     Dates: start: 20181026
  23. ACTEMRA [Suspect]
     Active Substance: TOCILIZUMAB
     Indication: RHEUMATOID ARTHRITIS
     Route: 058
     Dates: start: 20200501
  24. CELECOXIB. [Concomitant]
     Active Substance: CELECOXIB
     Dates: start: 20181026
  25. PARIET [Concomitant]
     Active Substance: RABEPRAZOLE SODIUM
  26. VITAMIN C [Concomitant]
     Active Substance: ASCORBIC ACID
  27. MYCOPHENOLATE MOFETIL SANDOZ [Concomitant]
     Active Substance: MYCOPHENOLATE MOFETIL
     Dates: start: 20180926
  28. MYCOPHENOLATE MOFETIL SANDOZ [Concomitant]
     Active Substance: MYCOPHENOLATE MOFETIL
     Dates: start: 20180726
  29. ACTEMRA [Suspect]
     Active Substance: TOCILIZUMAB
     Indication: RHEUMATOID ARTHRITIS
     Route: 042
     Dates: start: 20110602, end: 20110714
  30. SALAGEN [Concomitant]
     Active Substance: PILOCARPINE HYDROCHLORIDE
  31. SPIRIVA [Concomitant]
     Active Substance: TIOTROPIUM BROMIDE MONOHYDRATE
     Dates: start: 20181026
  32. CALCIUM [Concomitant]
     Active Substance: CALCIUM
  33. DEXILANT [Concomitant]
     Active Substance: DEXLANSOPRAZOLE
  34. SYMBICORT [Concomitant]
     Active Substance: BUDESONIDE\FORMOTEROL FUMARATE DIHYDRATE
  35. PNEUMOVAX 23 [Concomitant]
     Active Substance: PNEUMOCOCCAL VACCINE, POLYVALENT 23
     Dosage: 0.5 ML
     Dates: start: 20181030
  36. SULFATRIM [Concomitant]
     Active Substance: SULFAMETHOXAZOLE\TRIMETHOPRIM
     Dosage: 160-800 MG
     Dates: start: 20181026
  37. SULFATRIM [Concomitant]
     Active Substance: SULFAMETHOXAZOLE\TRIMETHOPRIM
     Dates: start: 20180926
  38. PREGABALIN. [Concomitant]
     Active Substance: PREGABALIN
     Dates: start: 20180928
  39. NYSTATIN. [Concomitant]
     Active Substance: NYSTATIN
     Dates: start: 20180717

REACTIONS (13)
  - Pulmonary fibrosis [Not Recovered/Not Resolved]
  - Bronchitis [Unknown]
  - Pneumonia [Unknown]
  - Fear of injection [Unknown]
  - Pulmonary embolism [Unknown]
  - Injection site bruising [Unknown]
  - Tendon rupture [Not Recovered/Not Resolved]
  - Musculoskeletal stiffness [Recovering/Resolving]
  - Pain in extremity [Unknown]
  - Gait disturbance [Unknown]
  - Interstitial lung disease [Unknown]
  - Fall [Unknown]
  - Nervousness [Unknown]

NARRATIVE: CASE EVENT DATE: 20171018
